FAERS Safety Report 21662751 (Version 1)
Quarter: 2022Q4

REPORT INFORMATION
  Report Type: Spontaneous
  Country: US (occurrence: None)
  Receive Date: 20221129
  Receipt Date: 20221129
  Transmission Date: 20230112
  Serious: No
  Sender: FDA-Public Use
  Company Number: None

PATIENT
  Age: 58 Year
  Sex: Male
  Weight: 151.95 kg

DRUGS (1)
  1. OZEMPIC [Suspect]
     Active Substance: SEMAGLUTIDE

REACTIONS (7)
  - Device difficult to use [None]
  - Product label confusion [None]
  - Product communication issue [None]
  - Device delivery system issue [None]
  - Device safety feature issue [None]
  - Device leakage [None]
  - Needle issue [None]

NARRATIVE: CASE EVENT DATE: 20221128
